FAERS Safety Report 23038651 (Version 1)
Quarter: 2023Q4

REPORT INFORMATION
  Report Type: Report from Study
  Country: TR (occurrence: TR)
  Receive Date: 20231006
  Receipt Date: 20231006
  Transmission Date: 20240110
  Serious: Yes (Hospitalization, Other)
  Sender: FDA-Public Use
  Company Number: TR-GENMAB-2023-00661

PATIENT
  Age: 7 Year
  Sex: Male
  Weight: 16.2 kg

DRUGS (9)
  1. EPCORITAMAB [Suspect]
     Active Substance: EPCORITAMAB
     Indication: Lymphoma
     Dosage: 0.048 MG CYCLE 1 DAY 1, TOTAL
     Route: 058
     Dates: start: 20230403, end: 20230403
  2. EPCORITAMAB [Suspect]
     Active Substance: EPCORITAMAB
     Dosage: 0.24 MG CYCLE 1 DAY 8, TOTAL
     Route: 058
     Dates: start: 20230410, end: 20230410
  3. IBUPROFEN SODIUM [Concomitant]
     Active Substance: IBUPROFEN SODIUM
     Indication: Abdominal pain
     Dosage: 150 MG, AS NECESSARY
     Dates: start: 20230407
  4. ACYCLOVIR [Concomitant]
     Active Substance: ACYCLOVIR
     Indication: Prophylaxis
     Dosage: 7.5 MILLILITER, 3/DAYS
  5. ACETAMINOPHEN [Concomitant]
     Active Substance: ACETAMINOPHEN
     Indication: Abdominal pain
     Dosage: 150 MILLIGRAM, Q6H
     Dates: start: 20230405
  6. SULFAMETHOXAZOLE\TRIMETHOPRIM [Concomitant]
     Active Substance: SULFAMETHOXAZOLE\TRIMETHOPRIM
     Indication: CD4 lymphocytes decreased
     Dosage: 2 X 5 ML, 3/WEEKS
     Dates: start: 20230405
  7. FENTANYL CITRATE [Concomitant]
     Active Substance: FENTANYL CITRATE
     Indication: Abdominal pain
     Dosage: 500 UG CONTINUOUS
     Dates: start: 20230407, end: 20230411
  8. VITAMIN D3 [Concomitant]
     Active Substance: CHOLECALCIFEROL
     Indication: Vitamin D deficiency
     Dosage: 6 DROPS, EVERY 1 DAYS
     Dates: start: 20230406
  9. LACTULOSE [Concomitant]
     Active Substance: LACTULOSE
     Indication: Constipation
     Dosage: 7.5 ML, 2/DAYS
     Dates: start: 20230404, end: 20230411

REACTIONS (3)
  - Cytokine release syndrome [Recovered/Resolved]
  - Tumour pain [Not Recovered/Not Resolved]
  - Small intestinal obstruction [Not Recovered/Not Resolved]

NARRATIVE: CASE EVENT DATE: 20230411
